FAERS Safety Report 23630820 (Version 2)
Quarter: 2024Q1

REPORT INFORMATION
  Report Type: Spontaneous
  Country: US (occurrence: US)
  Receive Date: 20240314
  Receipt Date: 20240331
  Transmission Date: 20240410
  Serious: Yes (Other)
  Sender: FDA-Public Use
  Company Number: US-TEVA-VS-3167534

PATIENT
  Age: 70 Year
  Sex: Male

DRUGS (7)
  1. METHOTREXATE [Suspect]
     Active Substance: METHOTREXATE
     Indication: Conjunctival scar
     Route: 065
  2. RITUXIMAB [Suspect]
     Active Substance: RITUXIMAB
     Indication: Conjunctival scar
     Dosage: RECEIVED INFUSION ONCE IN A WEEK FOR EIGHT WEEKS
     Route: 065
  3. RITUXIMAB [Suspect]
     Active Substance: RITUXIMAB
     Indication: Conjunctival scar
     Dosage: RECEIVED MONTHLY INFUSION
     Route: 065
  4. IVIG (Immune-globulin) [Concomitant]
     Indication: Conjunctival scar
     Dosage: RECEIVED INFUSION OF 2G/KG
     Route: 050
  5. TRIAMCINOLONE [Suspect]
     Active Substance: TRIAMCINOLONE
     Indication: Conjunctival scar
     Dosage: RECEIVED 0.1ML VOLUME OF CONCENTRATION 40MG/ML
     Route: 026
  6. LOTEPREDNOL ETABONATE [Suspect]
     Active Substance: LOTEPREDNOL ETABONATE
     Indication: Conjunctival scar
     Route: 065
  7. MYCOPHENOLATE MOFETIL [Suspect]
     Active Substance: MYCOPHENOLATE MOFETIL
     Indication: Conjunctival scar
     Route: 065

REACTIONS (3)
  - Drug ineffective [Unknown]
  - Intraocular pressure increased [Unknown]
  - Off label use [Unknown]
